FAERS Safety Report 6839258-8 (Version None)
Quarter: 2010Q3

REPORT INFORMATION
  Report Type: 
  Country: None (occurrence: None)
  Receive Date: 20100707
  Receipt Date: 20100704
  Transmission Date: 20110219
  Serious: Yes (Life-Threatening)
  Sender: FDA-Public Use
  Company Number: 2010TJ0086FU1

PATIENT
  Age: 13 Year
  Sex: Female

DRUGS (1)
  1. TWINJECT 0.3 [Suspect]
     Indication: HYPERSENSITIVITY
     Dosage: 0.3 MG, AS NEEDED
     Dates: start: 20100415, end: 20100415

REACTIONS (3)
  - DEVICE FAILURE [None]
  - DRUG ADMINISTRATION ERROR [None]
  - INJURY ASSOCIATED WITH DEVICE [None]
